FAERS Safety Report 19088219 (Version 3)
Quarter: 2021Q2

REPORT INFORMATION
  Report Type: Spontaneous
  Country: GR (occurrence: GR)
  Receive Date: 20210402
  Receipt Date: 20210429
  Transmission Date: 20210717
  Serious: Yes (Other)
  Sender: FDA-Public Use
  Company Number: GR-ALLERGAN-2113864US

PATIENT
  Sex: Female

DRUGS (7)
  1. POLIVY [Suspect]
     Active Substance: POLATUZUMAB VEDOTIN-PIIQ
     Indication: NON-HODGKIN^S LYMPHOMA
     Dosage: RECEIVED 3 CYCLES OF POLIVY?MABTHERA?BENDAMUSTINE, LAST CYCLE 29?30/MAR/2021
     Route: 065
     Dates: start: 20210329, end: 20210330
  2. PREDNISOLONE UNK [Suspect]
     Active Substance: PREDNISOLONE
     Indication: PRODUCT USED FOR UNKNOWN INDICATION
     Dosage: UNK
     Route: 065
     Dates: start: 202103
  3. CYCLOPHOSPHAMIDE. [Suspect]
     Active Substance: CYCLOPHOSPHAMIDE
     Indication: PRODUCT USED FOR UNKNOWN INDICATION
     Route: 065
     Dates: start: 202103
  4. DOXORUBICIN [Suspect]
     Active Substance: DOXORUBICIN
     Indication: PRODUCT USED FOR UNKNOWN INDICATION
     Route: 065
     Dates: start: 202103
  5. BENDAMUSTINE [Suspect]
     Active Substance: BENDAMUSTINE
     Indication: PRODUCT USED FOR UNKNOWN INDICATION
     Dosage: RECEIVED 3 CYCLES OF POLIVY?MABTHERA?BENDAMUSTINE, LAST CYCLE 29?30/MAR/2021).
     Route: 042
     Dates: start: 202103
  6. MABTHERA [Suspect]
     Active Substance: RITUXIMAB
     Indication: PRODUCT USED FOR UNKNOWN INDICATION
     Dosage: RECEIVED 3 CYCLES OF POLIVY?MABTHERA?BENDAMUSTINE, LAST CYCLE 29?30/MAR/2021
     Route: 065
     Dates: start: 20210329, end: 20210330
  7. VINCRISTINE SULFATE. [Suspect]
     Active Substance: VINCRISTINE SULFATE
     Indication: PRODUCT USED FOR UNKNOWN INDICATION
     Route: 065
     Dates: start: 202103

REACTIONS (2)
  - Neutropenia [Unknown]
  - Bone pain [Unknown]
